FAERS Safety Report 15223002 (Version 3)
Quarter: 2018Q3

REPORT INFORMATION
  Report Type: Report from Study
  Country: GB (occurrence: GB)
  Receive Date: 20180731
  Receipt Date: 20180813
  Transmission Date: 20181010
  Serious: Yes (Other)
  Sender: FDA-Public Use
  Company Number: GB-JNJFOC-20180733319

PATIENT
  Age: 52 Year
  Sex: Male
  Weight: 91.6 kg

DRUGS (4)
  1. ASPIRIN. [Concomitant]
     Active Substance: ASPIRIN
     Route: 065
     Dates: start: 20100108
  2. LERCANIDIPINE [Concomitant]
     Active Substance: LERCANIDIPINE
     Route: 065
     Dates: start: 20100203
  3. CANDESARTAN. [Concomitant]
     Active Substance: CANDESARTAN
     Route: 065
     Dates: start: 20100203
  4. STELARA [Suspect]
     Active Substance: USTEKINUMAB
     Indication: PSORIASIS
     Route: 058
     Dates: start: 20130514

REACTIONS (1)
  - Basal cell carcinoma [Recovered/Resolved]

NARRATIVE: CASE EVENT DATE: 20160215
